FAERS Safety Report 7012993-7 (Version None)
Quarter: 2010Q3

REPORT INFORMATION
  Report Type: 
  Country: None (occurrence: None)
  Receive Date: 20100915
  Receipt Date: 20100317
  Transmission Date: 20110219
  Serious: Yes (Other)
  Sender: FDA-Public Use
  Company Number: US-WYE-H14182810

PATIENT
  Age: 73 Year
  Sex: Female
  Weight: 81.27 kg

DRUGS (2)
  1. ADVIL [Suspect]
     Indication: ARTHRALGIA
     Dosage: 2 CAPSULE 1X PER 1 DAY, ORAL
     Route: 048
     Dates: start: 20080101, end: 20100301
  2. CLARITIN [Concomitant]

REACTIONS (1)
  - BLOOD PRESSURE INCREASED [None]
